FAERS Safety Report 8240683-1 (Version None)
Quarter: 2012Q1

REPORT INFORMATION
  Report Type: 
  Country: None (occurrence: None)
  Receive Date: 20120314
  Receipt Date: 20120125
  Transmission Date: 20120608
  Serious: Yes (Other)
  Sender: FDA-Public Use
  Company Number: PHHY2010US82439

PATIENT
  Age: 47 Year
  Sex: Female

DRUGS (10)
  1. BACLOFEN [Concomitant]
  2. ZANAFLEX [Concomitant]
  3. EXTAVIA [Suspect]
     Indication: MULTIPLE SCLEROSIS
     Dosage: 0.25 MG, QOD, SUBCUTANEOUS ; 0.25 MG, QOD, SUBCUTANEOUS
     Route: 058
     Dates: start: 20091012
  4. EXTAVIA [Suspect]
     Indication: MULTIPLE SCLEROSIS
     Dosage: 0.25 MG, QOD, SUBCUTANEOUS ; 0.25 MG, QOD, SUBCUTANEOUS
     Route: 058
     Dates: end: 20110601
  5. ZETIA [Concomitant]
  6. CARBATROL [Concomitant]
  7. LOVAZA [Concomitant]
  8. GILENYA [Concomitant]
  9. TOPAMAX [Concomitant]
  10. VALIUM [Concomitant]

REACTIONS (3)
  - CYSTITIS [None]
  - INJECTION SITE DISCOLOURATION [None]
  - INJECTION SITE ERYTHEMA [None]
